FAERS Safety Report 9353167 (Version 1)
Quarter: 2013Q2

REPORT INFORMATION
  Report Type: Report from Study
  Country: US (occurrence: US)
  Receive Date: 20130618
  Receipt Date: 20130618
  Transmission Date: 20140414
  Serious: Yes (Other)
  Sender: FDA-Public Use
  Company Number: US-ASTELLAS-2013US006260

PATIENT
  Age: 65 Year
  Sex: Male

DRUGS (2)
  1. ERLOTINIB TABLET [Suspect]
     Indication: LUNG ADENOCARCINOMA
     Dosage: 100 MG, UNKNOWN/D
     Route: 048
     Dates: start: 20130228
  2. ERLOTINIB TABLET [Suspect]
     Dosage: 25 MG, UNKNOWN/D
     Route: 048

REACTIONS (11)
  - Incorrect dose administered [Unknown]
  - Eye haemorrhage [Not Recovered/Not Resolved]
  - Genital burning sensation [Not Recovered/Not Resolved]
  - Genital erythema [Not Recovered/Not Resolved]
  - Ocular hyperaemia [Recovered/Resolved]
  - Erythema [Not Recovered/Not Resolved]
  - Rash [Not Recovered/Not Resolved]
  - Diarrhoea [Recovered/Resolved]
  - Decreased appetite [Recovered/Resolved]
  - Rash vesicular [Recovered/Resolved]
  - Erythema [Not Recovered/Not Resolved]
